FAERS Safety Report 6488813-6 (Version None)
Quarter: 2009Q4

REPORT INFORMATION
  Report Type: 
  Country: None (occurrence: None)
  Receive Date: 20091210
  Receipt Date: 20091208
  Transmission Date: 20100525
  Serious: Yes (Death)
  Sender: FDA-Public Use
  Company Number: CN-PFIZER INC-2009306996

PATIENT
  Age: 53 Year
  Sex: Male

DRUGS (5)
  1. DYNASTAT [Suspect]
     Indication: ANALGESIC THERAPY
  2. CELEBREX [Suspect]
     Indication: ANALGESIC THERAPY
  3. INFLUENZA VACCINE [Suspect]
  4. TRAMADOL [Concomitant]
     Indication: ANALGESIC THERAPY
  5. MORPHINE [Concomitant]
     Indication: ANALGESIC THERAPY

REACTIONS (1)
  - MULTI-ORGAN FAILURE [None]
